FAERS Safety Report 6229986-X (Version None)
Quarter: 2009Q2

REPORT INFORMATION
  Report Type: 
  Country: None (occurrence: None)
  Receive Date: 20090615
  Receipt Date: 20090608
  Transmission Date: 20091009
  Serious: Yes (Hospitalization)
  Sender: FDA-Public Use
  Company Number: JP-AVENTIS-200910044JP

PATIENT
  Age: 58 Year
  Sex: Male
  Weight: 56.5 kg

DRUGS (4)
  1. AMARYL [Suspect]
     Indication: TYPE 2 DIABETES MELLITUS
     Route: 048
     Dates: start: 20080926, end: 20090107
  2. ORAL BLOOD GLUCOSE LOWERING DRUGS [Suspect]
     Indication: TYPE 2 DIABETES MELLITUS
     Dosage: DOSE: 1 TBLS
     Route: 048
     Dates: start: 20081220, end: 20090107
  3. BLOPRESS [Concomitant]
     Indication: HYPERTENSION
     Route: 048
     Dates: start: 20060101, end: 20090107
  4. KARY UNI                           /00528801/ [Concomitant]
     Indication: CATARACT
     Route: 031
     Dates: start: 20060822

REACTIONS (2)
  - CEREBRAL INFARCTION [None]
  - HYPERTENSION [None]
